FAERS Safety Report 7411136-5 (Version None)
Quarter: 2011Q2

REPORT INFORMATION
  Report Type: 
  Country: None (occurrence: None)
  Receive Date: 20110413
  Receipt Date: 20100218
  Transmission Date: 20111010
  Serious: Yes (Other)
  Sender: FDA-Public Use
  Company Number: US-BRISTOL-MYERS SQUIBB COMPANY-14985758

PATIENT
  Sex: Male

DRUGS (7)
  1. ERBITUX [Suspect]
     Indication: NEOPLASM
  2. ZOFRAN [Concomitant]
     Indication: PREMEDICATION
  3. SOLU-MEDROL [Concomitant]
     Indication: PREMEDICATION
  4. BENADRYL [Concomitant]
     Indication: PREMEDICATION
  5. ACETAMINOPHEN [Concomitant]
     Indication: PREMEDICATION
  6. PEPCID [Concomitant]
     Indication: PREMEDICATION
  7. ALBUTEROL [Concomitant]
     Indication: PREMEDICATION

REACTIONS (4)
  - PRURITUS [None]
  - TACHYCARDIA [None]
  - PHARYNGEAL OEDEMA [None]
  - URTICARIA [None]
